FAERS Safety Report 7682470-9 (Version None)
Quarter: 2011Q3

REPORT INFORMATION
  Report Type: 
  Country: None (occurrence: None)
  Receive Date: 20110810
  Receipt Date: 20110728
  Transmission Date: 20111222
  Serious: Yes (Other)
  Sender: FDA-Public Use
  Company Number: 2011CP000134

PATIENT
  Age: 16 Year
  Sex: Male

DRUGS (1)
  1. ACETAMINOPHEN [Suspect]
     Dosage: 1 GRAM IV
     Route: 042

REACTIONS (2)
  - AGITATION [None]
  - CONVULSION [None]
